FAERS Safety Report 5940477-3 (Version None)
Quarter: 2008Q4

REPORT INFORMATION
  Report Type: 
  Country: None (occurrence: None)
  Receive Date: 20081104
  Receipt Date: 20081029
  Transmission Date: 20090506
  Serious: Yes (Other)
  Sender: FDA-Public Use
  Company Number: GB-WYE-G02468108

PATIENT

DRUGS (1)
  1. TAZOCIN [Suspect]
     Dosage: UNKNOWN

REACTIONS (1)
  - HEPATOTOXICITY [None]
